FAERS Safety Report 9325301 (Version 1)
Quarter: 2013Q2

REPORT INFORMATION
  Report Type: Spontaneous
  Country: US (occurrence: US)
  Receive Date: 20130604
  Receipt Date: 20130604
  Transmission Date: 20140414
  Serious: No
  Sender: FDA-Public Use
  Company Number: US-BIOGENIDEC-2013BI047836

PATIENT
  Sex: Female

DRUGS (3)
  1. AVONEX [Suspect]
     Indication: MULTIPLE SCLEROSIS
     Route: 030
     Dates: start: 20010310
  2. AVONEX [Suspect]
     Indication: MULTIPLE SCLEROSIS
     Route: 030
     Dates: start: 20020112, end: 20070823
  3. COPAXONE [Concomitant]

REACTIONS (4)
  - Mobility decreased [Not Recovered/Not Resolved]
  - Coordination abnormal [Unknown]
  - Motor dysfunction [Not Recovered/Not Resolved]
  - Drug ineffective [Unknown]
